FAERS Safety Report 9113657 (Version 1)
Quarter: 2013Q1

REPORT INFORMATION
  Report Type: Report from Study
  Country: US (occurrence: US)
  Receive Date: 20130129
  Receipt Date: 20130129
  Transmission Date: 20140127
  Serious: No
  Sender: FDA-Public Use
  Company Number: US-ABBOTT-12P-163-0937284-00

PATIENT
  Age: 51 Year
  Sex: Female
  Weight: 138.47 kg

DRUGS (7)
  1. HUMIRA 40 MG/0.8 ML PEN [Suspect]
     Indication: CROHN^S DISEASE
     Dosage: LOADING DOSE
     Dates: start: 20120516, end: 20120516
  2. HUMIRA 40 MG/0.8 ML PEN [Suspect]
  3. METOPROLOL [Concomitant]
     Indication: HYPERTENSION
  4. HYDROCHLOROTHIAZIDE [Concomitant]
     Indication: FLUID RETENTION
  5. AZATHIOPRINE [Concomitant]
     Indication: CROHN^S DISEASE
  6. PROZAC [Concomitant]
     Indication: DEPRESSION
  7. ALBUTEROL [Concomitant]
     Indication: ASTHMA

REACTIONS (1)
  - Fatigue [Not Recovered/Not Resolved]
